FAERS Safety Report 7307943-X (Version None)
Quarter: 2011Q1

REPORT INFORMATION
  Report Type: 
  Country: None (occurrence: None)
  Receive Date: 20110223
  Receipt Date: 20110209
  Transmission Date: 20110831
  Serious: Yes (Hospitalization, Other)
  Sender: FDA-Public Use
  Company Number: IT-GENENTECH-313453

PATIENT
  Sex: Female

DRUGS (2)
  1. LUCENTIS [Suspect]
     Indication: MACULAR DEGENERATION
     Dosage: 0.5 MG, 1/MONTH
     Route: 031
     Dates: start: 20101025
  2. LUCENTIS [Suspect]
     Dosage: 0.5 MG, 1/MONTH
     Route: 031
     Dates: start: 20101122

REACTIONS (1)
  - PULMONARY EMBOLISM [None]
